FAERS Safety Report 19710043 (Version 1)
Quarter: 2021Q3

REPORT INFORMATION
  Report Type: Spontaneous
  Country: US (occurrence: US)
  Receive Date: 20210816
  Receipt Date: 20210816
  Transmission Date: 20211014
  Serious: Yes (Hospitalization, Other)
  Sender: FDA-Public Use
  Company Number: US-OTSUKA-2021_028149

PATIENT
  Sex: Male

DRUGS (2)
  1. ABILIFY MAINTENA [Suspect]
     Active Substance: ARIPIPRAZOLE
     Indication: SCHIZOPHRENIA
     Dosage: 425 MG
     Route: 065
     Dates: start: 2014
  2. DEPAKOTE [Concomitant]
     Active Substance: DIVALPROEX SODIUM
     Indication: PRODUCT USED FOR UNKNOWN INDICATION
     Dosage: 1200 MG, QD
     Route: 065

REACTIONS (5)
  - Renal failure [Unknown]
  - Agitation [Unknown]
  - Incorrect dose administered [Unknown]
  - Schizophrenia [Unknown]
  - Confusional state [Unknown]

NARRATIVE: CASE EVENT DATE: 2014
